FAERS Safety Report 7162641-0 (Version None)
Quarter: 2010Q4

REPORT INFORMATION
  Report Type: 
  Country: None (occurrence: None)
  Receive Date: 20101215
  Receipt Date: 20091214
  Transmission Date: 20110411
  Serious: Yes (Hospitalization)
  Sender: FDA-Public Use
  Company Number: FR-PFIZER INC-2009248542

PATIENT
  Age: 77 Year
  Sex: Female

DRUGS (2)
  1. LYRICA [Suspect]
     Indication: NEURALGIA
     Dosage: 25 MG, 2X/DAY
     Dates: start: 20080801
  2. LYRICA [Suspect]
     Dosage: 75 MG, 2X/DAY

REACTIONS (3)
  - FALL [None]
  - LEUKOPENIA [None]
  - NEUTROPENIA [None]
